FAERS Safety Report 19991202 (Version 5)
Quarter: 2022Q1

REPORT INFORMATION
  Report Type: Report from Study
  Country: US (occurrence: US)
  Receive Date: 20211025
  Receipt Date: 20220221
  Transmission Date: 20220423
  Serious: Yes (Hospitalization, Other)
  Sender: FDA-Public Use
  Company Number: US-NOVARTISPH-NVSC2021US239451

PATIENT
  Sex: Female

DRUGS (1)
  1. TABRECTA [Suspect]
     Active Substance: CAPMATINIB
     Indication: Non-small cell lung cancer
     Dosage: UNK
     Route: 065
     Dates: start: 20211005

REACTIONS (9)
  - Respiratory arrest [Unknown]
  - Cardiac dysfunction [Unknown]
  - Loss of consciousness [Unknown]
  - Joint swelling [Unknown]
  - Drug withdrawal syndrome [Unknown]
  - Peripheral swelling [Unknown]
  - Nausea [Unknown]
  - Oedema [Unknown]
  - Product dose omission issue [Unknown]
